FAERS Safety Report 6936006-8 (Version None)
Quarter: 2010Q3

REPORT INFORMATION
  Report Type: 
  Country: None (occurrence: None)
  Receive Date: 20100823
  Receipt Date: 20100817
  Transmission Date: 20110219
  Serious: Yes (Other)
  Sender: FDA-Public Use
  Company Number: US-BAYER-201030810NA

PATIENT
  Age: 47 Year
  Sex: Female

DRUGS (1)
  1. AVELOX [Suspect]
     Indication: LOCALISED INFECTION
     Dosage: AS USED: 400 MG  UNIT DOSE: 400 MG
     Route: 048

REACTIONS (4)
  - AMNESIA [None]
  - ANXIETY [None]
  - CONFUSIONAL STATE [None]
  - PAIN IN EXTREMITY [None]
